FAERS Safety Report 23672798 (Version 1)
Quarter: 2024Q1

REPORT INFORMATION
  Report Type: Spontaneous
  Country: US (occurrence: US)
  Receive Date: 20240326
  Receipt Date: 20240326
  Transmission Date: 20240410
  Serious: No
  Sender: FDA-Public Use
  Company Number: US-MIMS-CORIMC-4555

PATIENT

DRUGS (2)
  1. AZSTARYS [Suspect]
     Active Substance: DEXMETHYLPHENIDATE HYDROCHLORIDE\SERDEXMETHYLPHENIDATE CHLORIDE
     Indication: Attention deficit hyperactivity disorder
     Dosage: 39.2 MG/7.8 MG, QD
     Route: 048
     Dates: start: 2023
  2. DULOXETINE [Concomitant]
     Active Substance: DULOXETINE
     Indication: Product used for unknown indication
     Dosage: UNK, QD
     Route: 065

REACTIONS (3)
  - Anxiety [Recovered/Resolved]
  - Withdrawal syndrome [Unknown]
  - Product dose omission issue [Unknown]
